FAERS Safety Report 7706284-6 (Version None)
Quarter: 2011Q3

REPORT INFORMATION
  Report Type: 
  Country: None (occurrence: None)
  Receive Date: 20110824
  Receipt Date: 20110817
  Transmission Date: 20111222
  Serious: Yes (Other)
  Sender: FDA-Public Use
  Company Number: US-ALLERGAN-1111094US

PATIENT
  Age: 85 Year
  Sex: Male

DRUGS (1)
  1. BOTULINUM TOXIN TYPE A [Suspect]
     Indication: MUSCLE SPASTICITY
     Dosage: UNKNOWN
     Route: 030
     Dates: start: 20090801, end: 20090801

REACTIONS (3)
  - RASH [None]
  - DYSPHAGIA [None]
  - GINGIVAL PAIN [None]
